FAERS Safety Report 9635523 (Version 2)
Quarter: 2013Q4

REPORT INFORMATION
  Report Type: Spontaneous
  Country: US (occurrence: US)
  Receive Date: 20131021
  Receipt Date: 20131021
  Transmission Date: 20140711
  Serious: No
  Sender: FDA-Public Use
  Company Number: US-PURDUE-USA-2013-0102638

PATIENT
  Age: 59 Year
  Sex: Female

DRUGS (1)
  1. BUTRANS [Suspect]
     Indication: PAIN
     Dosage: 20 MCG/HR, 1/WEEK
     Route: 062
     Dates: start: 20120403, end: 20120808

REACTIONS (1)
  - Application site rash [Recovered/Resolved]
